FAERS Safety Report 8917570 (Version 1)
Quarter: 2012Q4

REPORT INFORMATION
  Report Type: 
  Country: US (occurrence: US)
  Receive Date: 20121119
  Receipt Date: 20121119
  Transmission Date: 20130627
  Serious: No
  Sender: FDA-Public Use
  Company Number: US-009507513-1211USA006004

PATIENT
  Sex: Female

DRUGS (2)
  1. ZETIA [Suspect]
     Dosage: 10 mg, qd
     Route: 048
     Dates: start: 2006
  2. SIMVASTATIN [Concomitant]

REACTIONS (1)
  - Abdominal pain [Unknown]
